FAERS Safety Report 6145203-3 (Version None)
Quarter: 2009Q2

REPORT INFORMATION
  Report Type: 
  Country: None (occurrence: None)
  Receive Date: 20090406
  Receipt Date: 20090401
  Transmission Date: 20091009
  Serious: Yes (Other)
  Sender: FDA-Public Use
  Company Number: US-JNJFOC-20090400598

PATIENT
  Age: 5 Year
  Sex: Male

DRUGS (3)
  1. CHILDRENS MOTRIN GRAPE [Suspect]
     Route: 048
  2. CHILDRENS MOTRIN GRAPE [Suspect]
     Indication: DRUG USE FOR UNKNOWN INDICATION
     Route: 048
  3. CHILDRENS TYLENOL PLUS COLD MULTI SYMPTOM GRAPE [Suspect]
     Indication: DRUG USE FOR UNKNOWN INDICATION
     Route: 048

REACTIONS (4)
  - PRODUCT QUALITY ISSUE [None]
  - PRODUCT TAMPERING [None]
  - VOMITING [None]
  - WRONG DRUG ADMINISTERED [None]
